FAERS Safety Report 13259445 (Version 1)
Quarter: 2017Q1

REPORT INFORMATION
  Report Type: Spontaneous
  Country: US (occurrence: US)
  Receive Date: 20170222
  Receipt Date: 20170222
  Transmission Date: 20170428
  Serious: No
  Sender: FDA-Public Use
  Company Number: US-PFIZER INC-2017077863

PATIENT
  Age: 5 Year
  Sex: Female

DRUGS (8)
  1. GENOTROPIN MQ [Suspect]
     Active Substance: SOMATROPIN
     Dosage: 0.6 MG, UNK
     Route: 058
     Dates: start: 20150120, end: 20160708
  2. PROBIOTIC [Concomitant]
     Active Substance: PROBIOTICS NOS
     Dosage: UNK, DAILY
     Route: 048
  3. GENOTROPIN MQ [Suspect]
     Active Substance: SOMATROPIN
     Indication: PRADER-WILLI SYNDROME
     Dosage: 0.4 MG, UNK
     Route: 058
  4. CYANOCOBALAMIN. [Concomitant]
     Active Substance: CYANOCOBALAMIN
     Dosage: 100 UG, DAILY
     Route: 048
  5. GENOTROPIN MQ [Suspect]
     Active Substance: SOMATROPIN
     Indication: GROWTH HORMONE DEFICIENCY
     Dosage: 0.6 MG, 1X/DAY (AT BEDTIME)
     Route: 058
     Dates: start: 2011
  6. FISH OIL [Concomitant]
     Active Substance: FISH OIL
     Dosage: UNK, AS INSTRUCTED
  7. CARNITOR [Concomitant]
     Active Substance: LEVOCARNITINE
     Dosage: 8 ML, DAILY
     Route: 048
  8. COROMEGA [Concomitant]
     Dosage: UNK
     Route: 048

REACTIONS (3)
  - Drug dose omission [Unknown]
  - Scoliosis [Unknown]
  - Eczema [Unknown]

NARRATIVE: CASE EVENT DATE: 201510
